FAERS Safety Report 21768706 (Version 1)
Quarter: 2022Q4

REPORT INFORMATION
  Report Type: Spontaneous
  Country: GB (occurrence: GB)
  Receive Date: 20221222
  Receipt Date: 20221222
  Transmission Date: 20230112
  Serious: Yes (Other)
  Sender: FDA-Public Use
  Company Number: None

PATIENT
  Age: 54 Year
  Sex: Female
  Weight: 74 kg

DRUGS (12)
  1. TOPIRAMATE [Suspect]
     Active Substance: TOPIRAMATE
     Indication: Product used for unknown indication
     Dosage: AT NIGHT FOR TWO WEEK, THEN TAKE 25 ...
     Route: 048
     Dates: start: 20220916
  2. AMITRIPTYLINE HYDROCHLORIDE [Concomitant]
     Active Substance: AMITRIPTYLINE HYDROCHLORIDE
     Dosage: AT NIGHT
     Dates: start: 20210326
  3. PROCHLORPERAZINE MALEATE [Concomitant]
     Active Substance: PROCHLORPERAZINE MALEATE
     Indication: Migraine
     Dosage: USE UNDER LIP WHEN ACUTE ATTACK OF MIGRAINE STARTS; MAX TWO TABLET IN 24 HOURS
     Dates: start: 20221004, end: 20221008
  4. ESTRIOL [Concomitant]
     Active Substance: ESTRIOL
     Dosage: 2 NIGHTS/WEEK
     Dates: start: 20210406
  5. FLUCLOXACILLIN [Concomitant]
     Active Substance: FLUCLOXACILLIN
     Dates: start: 20221102, end: 20221109
  6. FROVATRIPTAN [Concomitant]
     Active Substance: FROVATRIPTAN
     Indication: Migraine
     Dosage: TAKE ONE AT START OF MIGRAINE,CAN TAKE 2ND DOSE AFTER 2 HRS IF NO BETTER, MAX TWO TABLETS IN 24 HRS
     Dates: start: 20221116, end: 20221119
  7. LANSOPRAZOLE [Concomitant]
     Active Substance: LANSOPRAZOLE
     Dates: start: 20210331
  8. BUPIVACAINE HYDROCHLORIDE [Concomitant]
     Active Substance: BUPIVACAINE HYDROCHLORIDE
     Dosage: USE AS DIRECTED
     Dates: start: 20221031, end: 20221101
  9. MEBEVERINE HYDROCHLORIDE [Concomitant]
     Active Substance: MEBEVERINE HYDROCHLORIDE
     Dosage: TAKE ONE 3 TIMES/DAY
     Dates: start: 20210331
  10. PROCHLORPERAZINE [Concomitant]
     Active Substance: PROCHLORPERAZINE
     Dosage: SUCH BY KEEPING UNDER THE LIP TWICE DAILY
     Dates: start: 20221004, end: 20221018
  11. SERTRALINE [Concomitant]
     Active Substance: SERTRALINE HYDROCHLORIDE
     Dates: start: 20220805
  12. TRIAMCINOLONE ACETONIDE [Concomitant]
     Active Substance: TRIAMCINOLONE ACETONIDE
     Dosage: USE AS DIRECTED
     Dates: start: 20221031, end: 20221101

REACTIONS (2)
  - Depression [Recovering/Resolving]
  - Mania [Recovering/Resolving]
